FAERS Safety Report 26187615 (Version 1)
Quarter: 2025Q4

REPORT INFORMATION
  Report Type: Spontaneous
  Country: CN (occurrence: CN)
  Receive Date: 20251222
  Receipt Date: 20251222
  Transmission Date: 20260118
  Serious: No
  Sender: BLUEPRINT MEDICINES
  Company Number: CN-CSTONE PHARMACEUTICALS (SUZHOU) CO., LTD.-2025CN00943

PATIENT
  Age: 30 Year
  Sex: Male

DRUGS (2)
  1. AYVAKIT [Suspect]
     Active Substance: AVAPRITINIB
     Indication: Leukaemia
     Dosage: 100 MILLIGRAM PER DAY, INTERMITTENT USE
     Route: 048
     Dates: start: 20250618
  2. AYVAKIT [Suspect]
     Active Substance: AVAPRITINIB
     Dosage: 100 MILLIGRAM PER DAY
     Route: 048

REACTIONS (1)
  - Off label use [Unknown]

NARRATIVE: CASE EVENT DATE: 20250618
